FAERS Safety Report 4912170-7 (Version None)
Quarter: 2006Q1

REPORT INFORMATION
  Report Type: 
  Country: None (occurrence: None)
  Receive Date: 20060215
  Receipt Date: 20050829
  Transmission Date: 20060701
  Serious: No
  Sender: FDA-Public Use
  Company Number: US-GLAXOSMITHKLINE-A0572196A

PATIENT
  Age: 63 Year
  Sex: Male
  Weight: 71.8 kg

DRUGS (2)
  1. VALTREX [Suspect]
     Dosage: 1G THREE TIMES PER DAY
     Route: 048
     Dates: start: 20050820
  2. EMETROL [Concomitant]
     Route: 065

REACTIONS (3)
  - DIZZINESS [None]
  - FEELING HOT [None]
  - NAUSEA [None]
